FAERS Safety Report 18059223 (Version 1)
Quarter: 2020Q3

REPORT INFORMATION
  Report Type: Spontaneous
  Country: US (occurrence: US)
  Receive Date: 20200722
  Receipt Date: 20200722
  Transmission Date: 20201103
  Serious: Yes (Hospitalization)
  Sender: FDA-Public Use
  Company Number: None

PATIENT
  Age: 39 Year
  Sex: Female
  Weight: 62.1 kg

DRUGS (1)
  1. VANCOMYCIN 10GM BLUE POINT LAB [Suspect]
     Active Substance: VANCOMYCIN
     Indication: CELLULITIS
     Dosage: ?          OTHER ROUTE:IV?
     Route: 042
     Dates: start: 20200602

REACTIONS (5)
  - Pyrexia [None]
  - Ventricular tachycardia [None]
  - Dyspnoea [None]
  - Vomiting [None]
  - Drug hypersensitivity [None]

NARRATIVE: CASE EVENT DATE: 20200609
